FAERS Safety Report 20458205 (Version 2)
Quarter: 2022Q1

REPORT INFORMATION
  Report Type: Spontaneous
  Country: AT (occurrence: AT)
  Receive Date: 20220211
  Receipt Date: 20220228
  Transmission Date: 20220423
  Serious: Yes (Hospitalization, Other)
  Sender: FDA-Public Use
  Company Number: None

PATIENT
  Sex: Female

DRUGS (10)
  1. FLUOXETINE [Suspect]
     Active Substance: FLUOXETINE HYDROCHLORIDE
     Indication: Mixed anxiety and depressive disorder
     Dosage: 10 MILLIGRAM, DAILY
     Route: 065
  2. FLUOXETINE [Suspect]
     Active Substance: FLUOXETINE HYDROCHLORIDE
     Dosage: 20 MILLIGRAM DAILY (DOSE INCREASED)
     Route: 065
  3. FLUOXETINE [Suspect]
     Active Substance: FLUOXETINE HYDROCHLORIDE
     Dosage: 10 MILLIGRAM, DAILY (DOSE REDUCED)
     Route: 065
  4. TRAZODONE [Suspect]
     Active Substance: TRAZODONE HYDROCHLORIDE
     Indication: Mixed anxiety and depressive disorder
     Dosage: 25 MILLIGRAM, UNK (LOW DOSE)
     Route: 065
  5. TRAZODONE [Suspect]
     Active Substance: TRAZODONE HYDROCHLORIDE
     Dosage: 200 MILLIGRAM, QD ( EVERY EVENING (DOSE INCREASED))
     Route: 065
  6. TRAZODONE [Suspect]
     Active Substance: TRAZODONE HYDROCHLORIDE
     Dosage: 150 MILLIGRAM, QD (EVERY EVENING (DOSE INCREASED))
     Route: 065
  7. BISOPROLOL [Concomitant]
     Active Substance: BISOPROLOL
     Indication: Hypertension
     Dosage: 5 MILLIGRAM, PER DAY
     Route: 065
  8. BISOPROLOL [Concomitant]
     Active Substance: BISOPROLOL
     Dosage: 7.50 MILLIGRAM, DAILY (DOSE INCREASED)
     Route: 065
  9. VALSARTAN [Concomitant]
     Active Substance: VALSARTAN
     Indication: Hypertension
     Dosage: UNK
     Route: 065
  10. LAVENDER OIL [Concomitant]
     Active Substance: LAVENDER OIL
     Indication: Product used for unknown indication
     Dosage: 80 MILLIGRAM, UNK
     Route: 065

REACTIONS (8)
  - Loss of personal independence in daily activities [Recovered/Resolved]
  - Stress [Recovered/Resolved]
  - Hangover [Unknown]
  - Postural tremor [Recovered/Resolved]
  - Fatigue [Unknown]
  - Rebound effect [Recovered/Resolved]
  - Mixed anxiety and depressive disorder [Recovered/Resolved]
  - Condition aggravated [Recovered/Resolved]
